FAERS Safety Report 20874104 (Version 4)
Quarter: 2022Q4

REPORT INFORMATION
  Report Type: Spontaneous
  Country: US (occurrence: US)
  Receive Date: 20220525
  Receipt Date: 20221216
  Transmission Date: 20230113
  Serious: No
  Sender: FDA-Public Use
  Company Number: US-BRISTOL-MYERS SQUIBB COMPANY-BMS-2021-065341

PATIENT
  Age: 84 Year
  Sex: Male
  Weight: 79.37 kg

DRUGS (4)
  1. ELIQUIS [Suspect]
     Active Substance: APIXABAN
     Indication: Cerebrovascular accident prophylaxis
     Dosage: 2.5 MG, 2X/DAY
     Route: 048
     Dates: start: 201909
  2. ELIQUIS [Suspect]
     Active Substance: APIXABAN
     Indication: Surgery
     Dosage: 5 MILLIGRAM (2/3 IN AM AND 1/3 IN PM)
     Route: 048
  3. METOPROLOL TARTRATE [Suspect]
     Active Substance: METOPROLOL TARTRATE
     Dosage: UNK
     Route: 065
  4. FLECAINIDE [Suspect]
     Active Substance: FLECAINIDE
     Dosage: UNK
     Route: 065

REACTIONS (4)
  - Tooth disorder [Unknown]
  - Fatigue [Unknown]
  - Treatment noncompliance [Unknown]
  - Incorrect dose administered [Unknown]
